FAERS Safety Report 20636907 (Version 1)
Quarter: 2022Q1

REPORT INFORMATION
  Report Type: Spontaneous
  Country: US (occurrence: None)
  Receive Date: 20220325
  Receipt Date: 20220325
  Transmission Date: 20220423
  Serious: Yes (Hospitalization, Other)
  Sender: FDA-Public Use
  Company Number: None

PATIENT
  Age: 33 Year
  Sex: Female
  Weight: 97.5 kg

DRUGS (1)
  1. INFED [Suspect]
     Active Substance: IRON DEXTRAN
     Indication: Iron deficiency anaemia
     Route: 042
     Dates: start: 20220324, end: 20220324

REACTIONS (6)
  - Dyspnoea [None]
  - Maternal exposure during pregnancy [None]
  - Foetal heart rate deceleration abnormality [None]
  - Adverse drug reaction [None]
  - Uterine contractions during pregnancy [None]
  - Maternal drugs affecting foetus [None]

NARRATIVE: CASE EVENT DATE: 20220324
